FAERS Safety Report 4473000-3 (Version None)
Quarter: 2004Q4

REPORT INFORMATION
  Report Type: 
  Country: None (occurrence: None)
  Receive Date: 20041013
  Receipt Date: 20041004
  Transmission Date: 20050328
  Serious: Yes (Hospitalization)
  Sender: FDA-Public Use
  Company Number: US-ROCHE-382171

PATIENT
  Age: 53 Year
  Sex: Female
  Weight: 115 kg

DRUGS (9)
  1. PEG-INTERFERON ALFA 2A (RO 25-8310) [Suspect]
     Route: 058
     Dates: start: 20040629, end: 20040929
  2. RIBAVIRIN [Suspect]
     Route: 048
     Dates: start: 20040929, end: 20040929
  3. ENALAPRIL MALEATE [Concomitant]
  4. OXYCODONE HCL [Concomitant]
     Dates: start: 20040615
  5. TEMAZEPAM [Concomitant]
  6. ZOLOFT [Concomitant]
     Dates: start: 20040713
  7. NEURONTIN [Concomitant]
     Dates: start: 20031215
  8. PREMPRO [Concomitant]
  9. LANTUS [Concomitant]

REACTIONS (8)
  - DIZZINESS [None]
  - DRUG TOXICITY [None]
  - DYSPNOEA [None]
  - HEADACHE [None]
  - NAUSEA [None]
  - SWELLING FACE [None]
  - SWOLLEN TONGUE [None]
  - VOMITING [None]
